FAERS Safety Report 10075684 (Version 1)
Quarter: 2014Q2

REPORT INFORMATION
  Report Type: Report from Study
  Country: CA (occurrence: CA)
  Receive Date: 20140414
  Receipt Date: 20140414
  Transmission Date: 20141212
  Serious: Yes (Other)
  Sender: FDA-Public Use
  Company Number: CA-JNJFOC-20140406524

PATIENT
  Sex: Female
  Weight: 1.98 kg

DRUGS (4)
  1. REMICADE [Suspect]
     Indication: CROHN^S DISEASE
     Dosage: LOADING DOSE, 0 WEEKS
     Route: 064
  2. REMICADE [Suspect]
     Indication: CROHN^S DISEASE
     Dosage: LOADING DOSE, 2 WEEKS
     Route: 064
  3. REMICADE [Suspect]
     Indication: CROHN^S DISEASE
     Dosage: LOADING DOSE, 6 WEEKS
     Route: 064
  4. REMICADE [Suspect]
     Indication: CROHN^S DISEASE
     Route: 064
     Dates: end: 201305

REACTIONS (2)
  - Foetal exposure during pregnancy [Recovered/Resolved]
  - Premature baby [Not Recovered/Not Resolved]
